FAERS Safety Report 21540303 (Version 4)
Quarter: 2023Q1

REPORT INFORMATION
  Report Type: Report from Study
  Country: US (occurrence: None)
  Receive Date: 20221102
  Receipt Date: 20230131
  Transmission Date: 20230417
  Serious: Yes (Hospitalization)
  Sender: FDA-Public Use
  Company Number: US-ROCHE-3207819

PATIENT
  Age: 73 Year
  Sex: Male
  Weight: 80.1 kg

DRUGS (44)
  1. RITUXIMAB [Suspect]
     Active Substance: RITUXIMAB
     Indication: Follicular lymphoma
     Dosage: DATE OF LAST DOSE PRIOR TO EVENT ON 14/APR/2022
     Route: 041
     Dates: start: 20211223, end: 20220113
  2. RITUXIMAB [Suspect]
     Active Substance: RITUXIMAB
     Route: 041
     Dates: start: 20220120, end: 20220414
  3. EPCORITAMAB [Suspect]
     Active Substance: EPCORITAMAB
     Indication: Follicular lymphoma
     Route: 058
     Dates: start: 20211223, end: 20211223
  4. EPCORITAMAB [Suspect]
     Active Substance: EPCORITAMAB
     Route: 058
     Dates: start: 20211230, end: 20211230
  5. EPCORITAMAB [Suspect]
     Active Substance: EPCORITAMAB
     Route: 058
     Dates: start: 20220106, end: 20220210
  6. EPCORITAMAB [Suspect]
     Active Substance: EPCORITAMAB
     Route: 058
     Dates: start: 20220217
  7. EPCORITAMAB [Suspect]
     Active Substance: EPCORITAMAB
     Route: 058
     Dates: start: 20221018
  8. LENALIDOMIDE [Suspect]
     Active Substance: LENALIDOMIDE
     Indication: Follicular lymphoma
     Route: 048
     Dates: start: 20211223, end: 20220109
  9. LENALIDOMIDE [Suspect]
     Active Substance: LENALIDOMIDE
     Route: 048
     Dates: start: 20220120, end: 20220209
  10. LENALIDOMIDE [Suspect]
     Active Substance: LENALIDOMIDE
     Route: 048
     Dates: start: 20220217, end: 20220309
  11. LENALIDOMIDE [Suspect]
     Active Substance: LENALIDOMIDE
     Route: 048
     Dates: start: 20220317, end: 20220406
  12. LENALIDOMIDE [Suspect]
     Active Substance: LENALIDOMIDE
     Route: 048
     Dates: start: 20220414, end: 20220504
  13. LENALIDOMIDE [Suspect]
     Active Substance: LENALIDOMIDE
     Route: 048
     Dates: start: 20220512, end: 20220531
  14. LENALIDOMIDE [Suspect]
     Active Substance: LENALIDOMIDE
     Route: 048
     Dates: start: 20220616, end: 20220627
  15. LENALIDOMIDE [Suspect]
     Active Substance: LENALIDOMIDE
     Route: 048
     Dates: start: 20220714, end: 20220803
  16. LENALIDOMIDE [Suspect]
     Active Substance: LENALIDOMIDE
     Route: 048
     Dates: start: 20220811, end: 20220831
  17. LENALIDOMIDE [Suspect]
     Active Substance: LENALIDOMIDE
     Route: 048
     Dates: start: 20220908, end: 20220928
  18. ACYCLOVIR [Concomitant]
     Active Substance: ACYCLOVIR
     Dates: start: 20210824
  19. APIXABAN [Concomitant]
     Active Substance: APIXABAN
     Dates: start: 20210823
  20. BRIMONIDINE [Concomitant]
     Active Substance: BRIMONIDINE TARTRATE
     Dates: start: 20210821
  21. CARVEDILOL [Concomitant]
     Active Substance: CARVEDILOL
     Dates: start: 20220405
  22. COMBIGAN [Concomitant]
     Active Substance: BRIMONIDINE TARTRATE\TIMOLOL MALEATE
     Dates: start: 2022
  23. DIGOXIN [Concomitant]
     Active Substance: DIGOXIN
     Dates: start: 20211217
  24. TIMOLOL [Concomitant]
     Active Substance: TIMOLOL
  25. ENTRESTO [Concomitant]
     Active Substance: SACUBITRIL\VALSARTAN
  26. EPLERENONE [Concomitant]
     Active Substance: EPLERENONE
     Dates: start: 20210821
  27. FINASTERIDE [Concomitant]
     Active Substance: FINASTERIDE
     Dates: start: 20210820
  28. LIPITOR [Concomitant]
     Active Substance: ATORVASTATIN CALCIUM
     Dates: start: 2021
  29. LUMIGAN [Concomitant]
     Active Substance: BIMATOPROST
     Dates: start: 2021
  30. OXYBUTYNIN [Concomitant]
     Active Substance: OXYBUTYNIN
     Dates: start: 20220617
  31. OXYCODONE [Concomitant]
     Active Substance: OXYCODONE
     Dates: start: 20210824
  32. PANTOPRAZOLE SODIUM [Concomitant]
     Active Substance: PANTOPRAZOLE SODIUM
     Dates: start: 20210821
  33. SENNA [Concomitant]
     Active Substance: SENNA LEAF\SENNOSIDES\SENNOSIDES A AND B
     Dates: start: 20210821
  34. TRAVOPROST [Concomitant]
     Active Substance: TRAVOPROST
     Dates: start: 20210721
  35. TYLENOL [Concomitant]
     Active Substance: ACETAMINOPHEN
     Dates: start: 20220127
  36. PENICILLIN V POTASSIUM [Concomitant]
     Active Substance: PENICILLIN V POTASSIUM
  37. HEPARIN [Concomitant]
     Active Substance: HEPARIN SODIUM
  38. LACTATED RINGERS SOLUTION [Concomitant]
     Active Substance: CALCIUM CHLORIDE\POTASSIUM CHLORIDE\SODIUM CHLORIDE\SODIUM LACTATE
  39. MAGNESIUM SULFATE [Concomitant]
     Active Substance: MAGNESIUM SULFATE
  40. NIRMATRELVIR\RITONAVIR [Concomitant]
     Active Substance: NIRMATRELVIR\RITONAVIR
  41. NOREPINEPHRINE [Concomitant]
     Active Substance: NOREPINEPHRINE
  42. PEGFILGRASTIM [Concomitant]
     Active Substance: PEGFILGRASTIM
  43. VALSARTAN [Concomitant]
     Active Substance: VALSARTAN
  44. ACETAMINOPHEN [Concomitant]
     Active Substance: ACETAMINOPHEN

REACTIONS (2)
  - COVID-19 [Recovered/Resolved]
  - Sepsis [Recovered/Resolved]

NARRATIVE: CASE EVENT DATE: 20221002
